FAERS Safety Report 10748331 (Version 1)
Quarter: 2015Q1

REPORT INFORMATION
  Report Type: Spontaneous
  Country: FI (occurrence: FI)
  Receive Date: 20150129
  Receipt Date: 20150129
  Transmission Date: 20150721
  Serious: Yes (Hospitalization)
  Sender: FDA-Public Use
  Company Number: FI-UCBSA-2015001651

PATIENT
  Age: 24 Year
  Sex: Female

DRUGS (6)
  1. TENOX [Concomitant]
     Indication: INSOMNIA
     Dosage: 20 MG, AS NEEDED (PRN)
     Route: 048
     Dates: start: 20140215
  2. CERAZETTE [Concomitant]
     Active Substance: DESOGESTREL
     Indication: CONTRACEPTION
     Dosage: 75 ?G, ONCE DAILY (QD)
     Route: 048
     Dates: start: 20130701
  3. ENTOCORT [Concomitant]
     Active Substance: BUDESONIDE
     Indication: COLITIS MICROSCOPIC
     Dosage: 3 MG, 3X/DAY (TID)
     Dates: start: 20141215
  4. KEPPRA [Suspect]
     Active Substance: LEVETIRACETAM
     Indication: EPILEPSY
     Dosage: 500 MG, 2X/DAY (BID)
     Route: 048
     Dates: start: 20140815, end: 20141218
  5. BECLOMET [Concomitant]
     Indication: PRODUCT USED FOR UNKNOWN INDICATION
     Dosage: STRENGTH: 400 MICROG/DOSE
     Dates: start: 20110901
  6. MONTELUKAST ACTAVIS [Concomitant]
     Indication: ASTHMA
     Dosage: 10 MG, ONCE DAILY (QD)
     Route: 048

REACTIONS (6)
  - Febrile neutropenia [Unknown]
  - Infection [Unknown]
  - Vomiting [Unknown]
  - Nausea [Unknown]
  - Diarrhoea [Recovered/Resolved]
  - Neutropenia [Unknown]

NARRATIVE: CASE EVENT DATE: 20141215
